FAERS Safety Report 9794538 (Version 1)
Quarter: 2014Q1

REPORT INFORMATION
  Report Type: Spontaneous
  Country: IT (occurrence: US)
  Receive Date: 20140102
  Receipt Date: 20140102
  Transmission Date: 20141002
  Serious: Yes (Other)
  Sender: FDA-Public Use
  Company Number: IT-ACORDA-ACO_101016_2013

PATIENT
  Sex: 0

DRUGS (1)
  1. TIZANIDINE [Suspect]
     Dosage: UNK,UNK
     Route: 065

REACTIONS (1)
  - Cystitis haemorrhagic [Unknown]
